FAERS Safety Report 15566916 (Version 1)
Quarter: 2018Q4

REPORT INFORMATION
  Report Type: Spontaneous
  Country: US (occurrence: US)
  Receive Date: 20181025
  Receipt Date: 20181025
  Transmission Date: 20190205
  Serious: No
  Sender: FDA-Public Use
  Company Number: None

PATIENT
  Age: 49 Year
  Sex: Female

DRUGS (2)
  1. KISQALI [Suspect]
     Active Substance: RIBOCICLIB
     Route: 048
     Dates: start: 20170926, end: 20180806
  2. ALOXI [Suspect]
     Active Substance: PALONOSETRON HYDROCHLORIDE

REACTIONS (2)
  - Nausea [None]
  - Dehydration [None]

NARRATIVE: CASE EVENT DATE: 20180924
